FAERS Safety Report 9268379 (Version 2)
Quarter: 2013Q2

REPORT INFORMATION
  Report Type: Spontaneous
  Country: DE (occurrence: ES)
  Receive Date: 20130502
  Receipt Date: 20130529
  Transmission Date: 20140414
  Serious: Yes (Life-Threatening, Hospitalization)
  Sender: FDA-Public Use
  Company Number: ES-FRI-1000044868

PATIENT
  Age: 61 Year
  Sex: Male
  Weight: 90 kg

DRUGS (12)
  1. ROFLUMILAST [Suspect]
     Indication: CHRONIC OBSTRUCTIVE PULMONARY DISEASE
     Dates: start: 201111, end: 201112
  2. ROFLUMILAST [Suspect]
     Dosage: 1 DF
     Dates: start: 201204
  3. ROFLUMILAST [Suspect]
     Dosage: 0.5 DF
     Dates: start: 201206
  4. ROFLUMILAST [Suspect]
     Dosage: 1 DF
     Dates: start: 201206
  5. ROFLUMILAST [Suspect]
     Indication: CHRONIC OBSTRUCTIVE PULMONARY DISEASE
     Dosage: 0.5 DF
     Dates: start: 201112
  6. INDACATEROL [Concomitant]
     Indication: CHRONIC OBSTRUCTIVE PULMONARY DISEASE
  7. TIOTROPIUM [Concomitant]
     Indication: CHRONIC OBSTRUCTIVE PULMONARY DISEASE
  8. BUDESONIDE [Concomitant]
     Indication: CHRONIC OBSTRUCTIVE PULMONARY DISEASE
  9. SECALIP [Concomitant]
     Indication: DYSLIPIDAEMIA
  10. DILTIAZEM [Concomitant]
     Indication: HYPERTENSION
  11. OLMESARTAN [Concomitant]
     Indication: HYPERTENSION
  12. HYDROCHLOROTHIAZIDE [Concomitant]
     Indication: HYPERTENSION

REACTIONS (10)
  - Pulmonary haemorrhage [Unknown]
  - Pyrexia [Unknown]
  - Blood urine present [Unknown]
  - Hypertension [Unknown]
  - C-reactive protein increased [Unknown]
  - Weight decreased [Unknown]
  - Pain in extremity [Recovered/Resolved]
  - Back pain [Unknown]
  - Back pain [Unknown]
  - Medication error [Unknown]
